FAERS Safety Report 11767633 (Version 1)
Quarter: 2015Q4

REPORT INFORMATION
  Report Type: Spontaneous
  Country: US (occurrence: None)
  Receive Date: 20151120
  Receipt Date: 20151120
  Transmission Date: 20160304
  Serious: Yes (Hospitalization)
  Sender: FDA-Public Use
  Company Number: None

PATIENT
  Age: 71 Year
  Sex: Male
  Weight: 77.1 kg

DRUGS (2)
  1. HEPARIN [Suspect]
     Active Substance: HEPARIN SODIUM
     Indication: PULMONARY EMBOLISM
     Dosage: 1300 UNITS  PER HOUR  IV
     Route: 042
     Dates: start: 20151107, end: 20151115
  2. ENOXAPARIN [Suspect]
     Active Substance: ENOXAPARIN
     Indication: PULMONARY EMBOLISM
     Route: 058
     Dates: start: 20151115, end: 20151116

REACTIONS (8)
  - Haemorrhage [None]
  - Localised intraabdominal fluid collection [None]
  - Hypotension [None]
  - Hypovolaemia [None]
  - Faeces discoloured [None]
  - Adrenal haemorrhage [None]
  - Melaena [None]
  - Haemorrhagic anaemia [None]

NARRATIVE: CASE EVENT DATE: 20151116
